FAERS Safety Report 9675427 (Version 2)
Quarter: 2013Q4

REPORT INFORMATION
  Report Type: Spontaneous
  Country: US (occurrence: US)
  Receive Date: 20131107
  Receipt Date: 20131107
  Transmission Date: 20140711
  Serious: Yes (Other)
  Sender: FDA-Public Use
  Company Number: US-SHIRE-ALL1-2013-06585

PATIENT
  Age: 22 Year
  Sex: Male
  Weight: 77.1 kg

DRUGS (6)
  1. VYVANSE [Suspect]
     Indication: ATTENTION DEFICIT/HYPERACTIVITY DISORDER
     Dosage: 70 MG, 1X/DAY:QD
     Route: 048
     Dates: end: 20130805
  2. ABILIFY [Suspect]
     Indication: BIPOLAR DISORDER
     Dosage: 20 MG, 1X/DAY:QD
     Route: 065
     Dates: start: 2009, end: 20130805
  3. ABILIFY [Suspect]
     Indication: SCHIZOPHRENIA
  4. CHANTIX [Suspect]
     Indication: SMOKING CESSATION THERAPY
     Dosage: 0.5 MG, 1X/DAY:QD
     Route: 065
     Dates: start: 20130729, end: 201308
  5. CHANTIX [Suspect]
     Dosage: 0.5 MG, 2X/DAY:BID
     Route: 065
     Dates: start: 201308, end: 201308
  6. CHANTIX [Suspect]
     Dosage: 1 MG, 2X/DAY:BID
     Route: 065
     Dates: start: 201308, end: 20130805

REACTIONS (7)
  - Psychotic disorder [Unknown]
  - Disturbance in social behaviour [Recovered/Resolved]
  - Performance status decreased [Recovered/Resolved]
  - Agitation [Recovered/Resolved]
  - Insomnia [Recovered/Resolved]
  - Irritability [Recovered/Resolved]
  - Aggression [Recovered/Resolved]
